FAERS Safety Report 14539769 (Version 1)
Quarter: 2018Q1

REPORT INFORMATION
  Report Type: Spontaneous
  Country: US (occurrence: US)
  Receive Date: 20180215
  Receipt Date: 20180215
  Transmission Date: 20180509
  Serious: Yes (Other)
  Sender: FDA-Public Use
  Company Number: None

PATIENT
  Age: 35 Year
  Sex: Female
  Weight: 63 kg

DRUGS (1)
  1. DYSPORT [Suspect]
     Active Substance: ABOBOTULINUMTOXINA
     Indication: SKIN WRINKLING
     Dosage: ?          OTHER FREQUENCY:ONCE;?
     Route: 058

REACTIONS (10)
  - Dizziness [None]
  - Blood urine present [None]
  - Feeling abnormal [None]
  - Dry mouth [None]
  - Feeling hot [None]
  - Headache [None]
  - Insomnia [None]
  - White blood cell count increased [None]
  - Impaired work ability [None]
  - Injection site pain [None]

NARRATIVE: CASE EVENT DATE: 20180112
